FAERS Safety Report 6827645-3 (Version None)
Quarter: 2010Q3

REPORT INFORMATION
  Report Type: 
  Country: None (occurrence: None)
  Receive Date: 20100709
  Receipt Date: 20070124
  Transmission Date: 20110219
  Serious: No
  Sender: FDA-Public Use
  Company Number: US-PFIZER INC-2007007214

PATIENT
  Sex: Female
  Weight: 72.57 kg

DRUGS (2)
  1. CHANTIX [Suspect]
     Indication: SMOKING CESSATION THERAPY
     Dates: start: 20070122
  2. ANTIBIOTICS [Concomitant]
     Indication: SINUSITIS

REACTIONS (3)
  - CONSTIPATION [None]
  - MEDICATION ERROR [None]
  - MUSCULOSKELETAL CHEST PAIN [None]
